FAERS Safety Report 16297907 (Version 2)
Quarter: 2019Q2

REPORT INFORMATION
  Report Type: Spontaneous
  Country: FR (occurrence: FR)
  Receive Date: 20190510
  Receipt Date: 20190528
  Transmission Date: 20190711
  Serious: Yes (Other)
  Sender: FDA-Public Use
  Company Number: FR-TEVA-2019-FR-1047565

PATIENT
  Age: 77 Year
  Sex: Female
  Weight: 60 kg

DRUGS (4)
  1. PURINETHOL [Concomitant]
     Active Substance: MERCAPTOPURINE
     Indication: POLYCYTHAEMIA VERA
     Route: 048
     Dates: start: 20140101
  2. LEVOTHYROX 125 MCG [Concomitant]
     Route: 048
     Dates: start: 20000101
  3. KARDEGIC [Concomitant]
     Active Substance: ASPIRIN DL-LYSINE
     Indication: POLYCYTHAEMIA VERA
     Dosage: 75 MILLIGRAM DAILY;
     Route: 048
     Dates: start: 20160101
  4. PREDNISOLONE TEVA 20 MG [Suspect]
     Active Substance: PREDNISOLONE
     Indication: DERMO-HYPODERMITIS
     Dosage: 60 MILLIGRAM DAILY;
     Route: 048
     Dates: start: 20190314, end: 20190320

REACTIONS (8)
  - Serous retinal detachment [Not Recovered/Not Resolved]
  - Eye oedema [Not Recovered/Not Resolved]
  - Eye haemorrhage [Recovering/Resolving]
  - Visual acuity reduced [Recovering/Resolving]
  - Vitritis [Recovering/Resolving]
  - Papilloedema [Not Recovered/Not Resolved]
  - Uveitis [Not Recovered/Not Resolved]
  - Eye pain [Recovering/Resolving]

NARRATIVE: CASE EVENT DATE: 20190330
